FAERS Safety Report 12792689 (Version 1)
Quarter: 2016Q3

REPORT INFORMATION
  Report Type: Spontaneous
  Country: US (occurrence: US)
  Receive Date: 20160929
  Receipt Date: 20160929
  Transmission Date: 20161109
  Serious: No
  Sender: FDA-Public Use
  Company Number: US-WATSON-2016-04779

PATIENT
  Sex: Male

DRUGS (1)
  1. GLIPIZIDE EXTENDED-RELEASE (WATSON LABORATORIES) [Suspect]
     Active Substance: GLIPIZIDE
     Indication: PRODUCT USED FOR UNKNOWN INDICATION
     Dosage: 10 MG, UNKNOWN
     Route: 065

REACTIONS (1)
  - Blood glucose increased [Unknown]
